FAERS Safety Report 10613162 (Version 3)
Quarter: 2015Q2

REPORT INFORMATION
  Report Type: Report from Study
  Country: DE (occurrence: DE)
  Receive Date: 20141128
  Receipt Date: 20150420
  Transmission Date: 20150821
  Serious: Yes (Hospitalization)
  Sender: FDA-Public Use
  Company Number: DE-BEH-2014046555

PATIENT
  Age: 73 Year
  Sex: Female
  Weight: 74 kg

DRUGS (17)
  1. INSPRA [Concomitant]
     Active Substance: EPLERENONE
  2. TOREM [Concomitant]
     Active Substance: TORSEMIDE
  3. PROTAPHANE [Concomitant]
     Active Substance: INSULIN HUMAN
  4. PRIVIGEN [Suspect]
     Active Substance: HUMAN IMMUNOGLOBULIN G
     Indication: CHRONIC LYMPHOCYTIC LEUKAEMIA
     Dosage: INFUSION RATE MIN. 0.37 ML/MIN, MAX. 2.5 ML/MIN
     Route: 042
     Dates: start: 20140820, end: 20140820
  5. PRIVIGEN [Suspect]
     Active Substance: HUMAN IMMUNOGLOBULIN G
     Dosage: INFUSION RATE MIN. 0.36 ML/MIN, MAX. 5 ML/MIN
     Route: 042
     Dates: start: 20140917, end: 20140917
  6. METFORMIN [Concomitant]
     Active Substance: METFORMIN HYDROCHLORIDE
  7. RAMIPRIL. [Concomitant]
     Active Substance: RAMIPRIL
  8. LYRICA [Concomitant]
     Active Substance: PREGABALIN
  9. METOPROLOL [Concomitant]
     Active Substance: METOPROLOL
  10. PRIVIGEN [Suspect]
     Active Substance: HUMAN IMMUNOGLOBULIN G
     Dosage: INFUSION RATE MIN. 0.7 ML/MIN, MAX. 6 ML/MIN
     Route: 042
     Dates: start: 20141205, end: 20141205
  11. ANTITHROMBOTIC AGENTS [Concomitant]
     Active Substance: UNSPECIFIED INGREDIENT
  12. CANDESARTAN [Concomitant]
     Active Substance: CANDESARTAN
  13. HUMALOG [Concomitant]
     Active Substance: INSULIN LISPRO
  14. OTHER ANTINEOPLASTIC AGENTS [Concomitant]
     Active Substance: UNSPECIFIED INGREDIENT
     Dates: start: 20141124
  15. PANTOZOL [Concomitant]
     Active Substance: PANTOPRAZOLE SODIUM
  16. DIGITOXIN [Concomitant]
     Active Substance: DIGITOXIN
  17. PRIVIGEN [Suspect]
     Active Substance: HUMAN IMMUNOGLOBULIN G
     Indication: IMMUNODEFICIENCY
     Dates: start: 20140828, end: 20140828

REACTIONS (12)
  - Rhinitis [Recovered/Resolved]
  - Diabetic neuropathy [Recovered/Resolved]
  - Vulvitis [Recovered/Resolved]
  - Fatigue [Recovering/Resolving]
  - Urinary tract infection bacterial [Recovered/Resolved]
  - Vulvovaginal pruritus [Recovered/Resolved]
  - Vulvovaginal candidiasis [Recovered/Resolved]
  - Diabetes mellitus [Recovered/Resolved]
  - Polydipsia [Recovered/Resolved]
  - Vulval ulceration [Recovered/Resolved]
  - Performance status decreased [Recovering/Resolving]
  - Vulvovaginal burning sensation [Recovered/Resolved]

NARRATIVE: CASE EVENT DATE: 20141011
